FAERS Safety Report 4503037-7 (Version None)
Quarter: 2004Q4

REPORT INFORMATION
  Report Type: 
  Country: None (occurrence: None)
  Receive Date: 20041112
  Receipt Date: 20041028
  Transmission Date: 20050328
  Serious: No
  Sender: FDA-Public Use
  Company Number: 2004SE05947

PATIENT
  Age: 77 Year
  Sex: Male

DRUGS (4)
  1. CASODEX [Suspect]
     Indication: PROSTATE CANCER
     Dosage: 150 MG DAILY PO
     Route: 048
     Dates: start: 19990101, end: 20040401
  2. LH-RH ANALOGUE [Concomitant]
  3. RANIDIL [Concomitant]
  4. DICLOFENAC [Concomitant]

REACTIONS (5)
  - BREAST CANCER [None]
  - GYNAECOMASTIA [None]
  - LYMPHADENOPATHY [None]
  - METASTASES TO BONE [None]
  - METASTASES TO SPINE [None]
